FAERS Safety Report 11398560 (Version 2)
Quarter: 2015Q3

REPORT INFORMATION
  Report Type: Spontaneous
  Country: IL (occurrence: IL)
  Receive Date: 20150820
  Receipt Date: 20150824
  Transmission Date: 20151125
  Serious: Yes (Hospitalization, Disabling)
  Sender: FDA-Public Use
  Company Number: IL-BAYER-2015-400260

PATIENT
  Age: 29 Year
  Sex: Female

DRUGS (2)
  1. YAZ [Suspect]
     Active Substance: DROSPIRENONE\ETHINYL ESTRADIOL
     Indication: CONTRACEPTION
     Dosage: UNK
     Dates: start: 201111, end: 201205
  2. LUSTRAL [Concomitant]
     Active Substance: SERTRALINE HYDROCHLORIDE

REACTIONS (16)
  - Depression [None]
  - Bed rest [None]
  - Deep vein thrombosis [None]
  - Adverse event [None]
  - Anxiety [None]
  - Impaired work ability [None]
  - Pain [None]
  - Discomfort [None]
  - Emotional distress [None]
  - Tension [None]
  - Hypercoagulation [None]
  - Back pain [None]
  - Peripheral swelling [None]
  - Impaired self-care [None]
  - Pain in extremity [None]
  - Movement disorder [None]

NARRATIVE: CASE EVENT DATE: 201206
